FAERS Safety Report 10426147 (Version 4)
Quarter: 2015Q4

REPORT INFORMATION
  Report Type: Report from Study
  Country: JP (occurrence: JP)
  Receive Date: 20140903
  Receipt Date: 20151222
  Transmission Date: 20160304
  Serious: Yes (Hospitalization)
  Sender: FDA-Public Use
  Company Number: JP-ROCHE-1457109

PATIENT
  Age: 61 Year
  Sex: Male
  Weight: 57 kg

DRUGS (23)
  1. PREDONINE [Concomitant]
     Active Substance: PREDNISOLONE\PREDNISOLONE ACETATE\PREDNISOLONE SODIUM SUCCINATE
     Route: 048
     Dates: start: 20140207, end: 20140218
  2. PREDONINE [Concomitant]
     Active Substance: PREDNISOLONE\PREDNISOLONE ACETATE\PREDNISOLONE SODIUM SUCCINATE
     Route: 048
     Dates: start: 20140417
  3. OLMETEC [Concomitant]
     Active Substance: OLMESARTAN MEDOXOMIL
     Dosage: DOSAGE IS UNCERTAIN.
     Route: 048
  4. SENNOSIDE [Concomitant]
     Active Substance: SENNOSIDES
     Dosage: DOSAGE IS UNCERTAIN.
     Route: 048
  5. TOCILIZUMAB [Suspect]
     Active Substance: TOCILIZUMAB
     Indication: RHEUMATOID ARTHRITIS
     Route: 058
     Dates: start: 20140401, end: 20140401
  6. TOCILIZUMAB [Suspect]
     Active Substance: TOCILIZUMAB
     Indication: RHEUMATOID ARTHRITIS
     Route: 058
     Dates: start: 20140416, end: 20140416
  7. CALCIUM LACTATE [Concomitant]
     Active Substance: CALCIUM LACTATE
     Dosage: DOSAGE IS UNCERTAIN.
     Route: 048
  8. TOCILIZUMAB [Suspect]
     Active Substance: TOCILIZUMAB
     Indication: RHEUMATOID ARTHRITIS
     Route: 058
     Dates: start: 20140430, end: 20140430
  9. TOCILIZUMAB [Suspect]
     Active Substance: TOCILIZUMAB
     Indication: RHEUMATOID ARTHRITIS
     Route: 058
     Dates: start: 20140318, end: 20140318
  10. PREDONINE [Concomitant]
     Active Substance: PREDNISOLONE\PREDNISOLONE ACETATE\PREDNISOLONE SODIUM SUCCINATE
     Route: 048
     Dates: start: 20140319, end: 20140416
  11. AMLODIN [Concomitant]
     Active Substance: AMLODIPINE BESYLATE
     Dosage: DOSAGE IS UNCERTAIN.
     Route: 048
  12. TOCILIZUMAB [Suspect]
     Active Substance: TOCILIZUMAB
     Indication: RHEUMATOID ARTHRITIS
     Dosage: DOSAGE WAS UNCERTAIN.
     Route: 058
     Dates: start: 20140206, end: 20140206
  13. TOCILIZUMAB [Suspect]
     Active Substance: TOCILIZUMAB
     Indication: RHEUMATOID ARTHRITIS
     Route: 058
     Dates: start: 20140220, end: 20140220
  14. PREDONINE [Concomitant]
     Active Substance: PREDNISOLONE\PREDNISOLONE ACETATE\PREDNISOLONE SODIUM SUCCINATE
     Route: 048
     Dates: start: 20140219, end: 20140318
  15. PARIET [Concomitant]
     Active Substance: RABEPRAZOLE SODIUM
     Dosage: DOSAGE IS UNCERTAIN.
     Route: 048
  16. FEBURIC [Concomitant]
     Active Substance: FEBUXOSTAT
     Dosage: DOSAGE IS UNCERTAIN.
     Route: 048
  17. REBAMIPIDE [Concomitant]
     Active Substance: REBAMIPIDE
     Indication: PROPHYLAXIS
     Dosage: DOSAGE IS UNCERTAIN.
     Route: 048
  18. ALFAROL [Concomitant]
     Active Substance: ALFACALCIDOL
     Dosage: DOSAGE IS UNCERTAIN.
     Route: 048
  19. AZULFIDINE EN-TABS [Concomitant]
     Active Substance: SULFASALAZINE
     Indication: RHEUMATOID ARTHRITIS
     Dosage: DOSAGE IS UNCERTAIN.
     Route: 048
  20. CELECOX [Concomitant]
     Active Substance: CELECOXIB
     Indication: RHEUMATOID ARTHRITIS
     Dosage: DOSAGE IS UNCERTAIN.
     Route: 048
  21. TOCILIZUMAB [Suspect]
     Active Substance: TOCILIZUMAB
     Indication: RHEUMATOID ARTHRITIS
     Route: 058
     Dates: start: 20140305, end: 20140305
  22. TOCILIZUMAB [Suspect]
     Active Substance: TOCILIZUMAB
     Indication: RHEUMATOID ARTHRITIS
     Route: 041
     Dates: start: 20120813, end: 20130820
  23. MYSLEE [Concomitant]
     Active Substance: ZOLPIDEM TARTRATE
     Dosage: DOSAGE IS UNCERTAIN.
     Route: 048

REACTIONS (2)
  - Cardiac failure acute [Unknown]
  - Aortic valve incompetence [Unknown]

NARRATIVE: CASE EVENT DATE: 20140508
